FAERS Safety Report 8029875-4 (Version None)
Quarter: 2012Q1

REPORT INFORMATION
  Report Type: 
  Country: None (occurrence: None)
  Receive Date: 20120109
  Receipt Date: 20120106
  Transmission Date: 20120608
  Serious: Yes (Death, Hospitalization)
  Sender: FDA-Public Use
  Company Number: US-B.I. PHARMACEUTICALS,INC./RIDGEFIELD-2012-BP-00325BP

PATIENT
  Sex: Male

DRUGS (3)
  1. MEN'S ONCE-A-DAY VITAMIN [Concomitant]
     Indication: PROPHYLAXIS
     Route: 048
  2. METOPROLOL SUCCINATE [Concomitant]
     Indication: HYPERTENSION
     Route: 048
  3. PRADAXA [Suspect]
     Indication: ATRIAL FIBRILLATION
     Route: 048
     Dates: start: 20110201, end: 20111001

REACTIONS (4)
  - MYOCARDIAL INFARCTION [None]
  - SEPSIS [None]
  - SPLENIC RUPTURE [None]
  - RENAL IMPAIRMENT [None]
